FAERS Safety Report 8315699-7 (Version None)
Quarter: 2012Q2

REPORT INFORMATION
  Report Type: 
  Country: None (occurrence: None)
  Receive Date: 20120426
  Receipt Date: 20120425
  Transmission Date: 20120825
  Serious: Yes (Disabling)
  Sender: FDA-Public Use
  Company Number: PHHY2012GB016587

PATIENT
  Age: 47 Year
  Sex: Male
  Weight: 96.9 kg

DRUGS (28)
  1. BISOPROLOL FUMARATE [Concomitant]
     Dosage: UNK
     Dates: start: 20111110, end: 20111208
  2. LAXIDO [Concomitant]
     Dosage: UNK
     Dates: start: 20111213, end: 20120208
  3. OMEPRAZOLE [Concomitant]
     Dosage: UNK
     Dates: start: 20111110, end: 20111208
  4. ACETAMINOPHEN [Concomitant]
     Dosage: UNK
     Dates: start: 20111110, end: 20111208
  5. PROCTOSEDYL [Concomitant]
     Dosage: UNK
     Dates: start: 20111025, end: 20111209
  6. SIMVASTATIN [Concomitant]
     Dosage: UNK
     Dates: start: 20111110, end: 20111208
  7. AMLODIPINE [Suspect]
     Dosage: 5 MG, QD
     Dates: start: 20120117, end: 20120131
  8. VALPROATE SODIUM [Concomitant]
     Dosage: UNK
     Dates: start: 20111110, end: 20111208
  9. PROCTOSEDYL [Concomitant]
     Dosage: UNK
     Dates: start: 20111025
  10. RAMIPRIL [Concomitant]
     Dosage: UNK
     Dates: start: 20111213, end: 20120208
  11. BENDROFLUMETHIAZIDE [Concomitant]
     Dosage: UNK
     Dates: start: 20111110, end: 20111208
  12. GLYCEROL 2.6% [Concomitant]
     Dosage: UNK
     Dates: start: 20111207, end: 20111209
  13. OTOMIZE [Concomitant]
     Dosage: UNK
     Dates: start: 20111114, end: 20111205
  14. ACETAMINOPHEN [Concomitant]
     Dosage: UNK
     Dates: start: 20111213, end: 20120208
  15. VALPROATE SODIUM [Concomitant]
     Dosage: UNK
     Dates: start: 20111213, end: 20120208
  16. SENNA [Concomitant]
     Dosage: UNK
     Dates: start: 20111130, end: 20111228
  17. RAMIPRIL [Concomitant]
     Dosage: UNK
     Dates: start: 20111110, end: 20111208
  18. BISOPROLOL FUMARATE [Concomitant]
     Dosage: UNK
     Dates: start: 20111213, end: 20120208
  19. LAXIDO [Concomitant]
     Dosage: UNK
     Dates: start: 20111110, end: 20111208
  20. SIMVASTATIN [Concomitant]
     Dosage: UNK
     Dates: start: 20111213, end: 20120208
  21. CINCHOCAINE [Concomitant]
     Dosage: UNK
     Dates: start: 20111125, end: 20111205
  22. GLYCERYL TRINITRATE [Concomitant]
     Dosage: UNK
     Dates: start: 20111025, end: 20111209
  23. ASPIRIN [Concomitant]
     Dosage: UNK
     Dates: start: 20111110, end: 20111208
  24. ASPIRIN [Concomitant]
     Dosage: UNK
     Dates: start: 20111213, end: 20120208
  25. BENDROFLUMETHIAZIDE [Concomitant]
     Dosage: UNK
     Dates: start: 20111213, end: 20120208
  26. BETAMETHASONE VALERATE [Concomitant]
     Dosage: UNK
     Dates: start: 20120117, end: 20120214
  27. GLYCERYL TRINITRATE [Concomitant]
     Dosage: UNK
     Dates: start: 20111213, end: 20120208
  28. OMEPRAZOLE [Concomitant]
     Dosage: UNK
     Dates: start: 20111213, end: 20120208

REACTIONS (1)
  - EPILEPSY [None]
